FAERS Safety Report 21015927 (Version 1)
Quarter: 2022Q2

REPORT INFORMATION
  Report Type: Spontaneous
  Country: US (occurrence: None)
  Receive Date: 20220627
  Receipt Date: 20220627
  Transmission Date: 20220721
  Serious: No
  Sender: FDA-Public Use
  Company Number: None

PATIENT
  Sex: Male

DRUGS (1)
  1. STELARA [Suspect]
     Active Substance: USTEKINUMAB
     Indication: Psoriasis
     Dosage: 45/.5 MG/ML EVERY 12 WEEKS  UNDER THE SKIN?
     Route: 058
     Dates: start: 202202

REACTIONS (3)
  - Skin disorder [None]
  - Therapy non-responder [None]
  - Psoriasis [None]
